FAERS Safety Report 6920754-X (Version None)
Quarter: 2010Q3

REPORT INFORMATION
  Report Type: 
  Country: None (occurrence: None)
  Receive Date: 20100812
  Receipt Date: 20100803
  Transmission Date: 20110219
  Serious: Yes (Other)
  Sender: FDA-Public Use
  Company Number: US-NOVOPROD-304108

PATIENT
  Sex: Female
  Weight: 90.703 kg

DRUGS (13)
  1. NOVOLOG [Suspect]
     Indication: TYPE 2 DIABETES MELLITUS
     Dosage: 25 -35 IU QID
     Route: 058
     Dates: start: 20000101
  2. NOVOLOG [Suspect]
     Dosage: 25-35 IU (6 TIMES QD)
     Route: 058
     Dates: start: 20000101, end: 20100308
  3. NOVOLOG [Suspect]
     Dosage: 30 U, TID, WITH MEALS
     Route: 058
     Dates: start: 20100309
  4. LEVEMIR [Suspect]
     Indication: TYPE 2 DIABETES MELLITUS
     Dosage: 100 IU, QD
     Route: 058
     Dates: start: 20100201
  5. VALIUM [Concomitant]
     Indication: MUSCLE SPASMS
     Dosage: UNK
     Route: 048
  6. PERCOCET [Concomitant]
     Indication: PAIN
     Dosage: UNK
     Route: 048
  7. XANAX [Concomitant]
     Indication: NERVOUSNESS
     Dosage: UNK
     Route: 048
  8. SINGULAIR [Concomitant]
     Indication: ASTHMA
     Route: 048
  9. FLONASE [Concomitant]
     Indication: ASTHMA
     Dosage: UNK
     Route: 048
  10. SYMBICORT [Concomitant]
     Indication: ASTHMA
     Dosage: UNK
     Route: 048
  11. ATENOLOL [Concomitant]
     Indication: HYPERTENSION
     Dosage: UNK
     Route: 048
  12. PROTONIX [Concomitant]
     Indication: GASTROOESOPHAGEAL REFLUX DISEASE
     Dosage: UNK
     Route: 048
  13. MYCELEX [Concomitant]
     Indication: ORAL CANDIDIASIS
     Dosage: UNK
     Route: 048

REACTIONS (5)
  - BLOOD GLUCOSE INCREASED [None]
  - CONVULSION [None]
  - DIABETES MELLITUS INADEQUATE CONTROL [None]
  - OEDEMA MOUTH [None]
  - SWELLING FACE [None]
